FAERS Safety Report 22611491 (Version 1)
Quarter: 2023Q2

REPORT INFORMATION
  Report Type: Report from Study
  Country: GB (occurrence: GB)
  Receive Date: 20230616
  Receipt Date: 20230616
  Transmission Date: 20230722
  Serious: Yes (Death, Hospitalization, Congenital Anomaly, Other)
  Sender: FDA-Public Use
  Company Number: GB-BoehringerIngelheim-2022-BI-178274

PATIENT
  Age: 3 Month
  Sex: Male

DRUGS (60)
  1. NEVIRAPINE [Suspect]
     Active Substance: NEVIRAPINE
     Indication: Foetal exposure during pregnancy
     Route: 064
     Dates: start: 20090101, end: 20100610
  2. LOPINAVIR\RITONAVIR [Suspect]
     Active Substance: LOPINAVIR\RITONAVIR
     Indication: Foetal exposure during pregnancy
     Dosage: MATERNAL DOSE: UNK
     Route: 064
  3. LOPINAVIR\RITONAVIR [Suspect]
     Active Substance: LOPINAVIR\RITONAVIR
     Indication: HIV infection
     Dosage: MATERNAL DOSE: UNK
     Route: 064
  4. LOPINAVIR\RITONAVIR [Suspect]
     Active Substance: LOPINAVIR\RITONAVIR
     Dosage: MATERNAL DOSE: UNK
     Dates: start: 20200610
  5. LOPINAVIR\RITONAVIR [Suspect]
     Active Substance: LOPINAVIR\RITONAVIR
     Dosage: MATERNAL DOSE: UNK
     Route: 064
     Dates: start: 20100610
  6. EMTRICITABINE\TENOFOVIR [Suspect]
     Active Substance: EMTRICITABINE\TENOFOVIR
     Indication: Product used for unknown indication
     Dosage: 1 DOSAGE FORM, QD
     Route: 064
     Dates: start: 20171006, end: 20180205
  7. ISENTRESS [Suspect]
     Active Substance: RALTEGRAVIR POTASSIUM
     Indication: Foetal exposure during pregnancy
     Dosage: UNK, (MATERNAL DOSE: 3200 MG, QD (800 MILLIGRAM, QID))
     Route: 064
  8. ISENTRESS [Suspect]
     Active Substance: RALTEGRAVIR POTASSIUM
     Dosage: 800 MG, Q6H
     Route: 064
  9. ISENTRESS [Suspect]
     Active Substance: RALTEGRAVIR POTASSIUM
     Dosage: UNK, (MATERNAL DOSE: 3200 MG, QD (800 MILLIGRAM, QID))
     Route: 064
     Dates: start: 20100610
  10. ISENTRESS [Suspect]
     Active Substance: RALTEGRAVIR POTASSIUM
     Dosage: 3200 MG, QD (800 MILLIGRAM, QID)
     Route: 064
  11. KALETRA [Suspect]
     Active Substance: LOPINAVIR\RITONAVIR
     Indication: Foetal exposure during pregnancy
     Dosage: MATERNAL DOSE: UNK
     Route: 064
     Dates: start: 20100610
  12. KALETRA [Suspect]
     Active Substance: LOPINAVIR\RITONAVIR
     Dosage: UNK
     Route: 064
     Dates: start: 20100610
  13. KALETRA [Suspect]
     Active Substance: LOPINAVIR\RITONAVIR
     Dosage: UNK
     Route: 064
     Dates: start: 20100610
  14. KALETRA [Suspect]
     Active Substance: LOPINAVIR\RITONAVIR
     Dosage: UNK, (MATERNAL DOSE: UNKNOWN)
     Route: 064
  15. INSULIN ASPART [Suspect]
     Active Substance: INSULIN ASPART
     Indication: Foetal exposure during pregnancy
     Dosage: UNK, (MATERNAL DOSE: UNKNOWN)
     Route: 064
  16. INSULIN ASPART [Suspect]
     Active Substance: INSULIN ASPART
     Indication: Maternal exposure timing unspecified
     Route: 064
  17. INSULIN ASPART [Suspect]
     Active Substance: INSULIN ASPART
     Route: 064
  18. EFAVIRENZ [Suspect]
     Active Substance: EFAVIRENZ
     Indication: Foetal exposure during pregnancy
     Dosage: 1 DOSAGE FORM, QD, (MATERNAL DOSE: 1 DOSAGE FORM, QD)
     Route: 064
  19. EFAVIRENZ [Suspect]
     Active Substance: EFAVIRENZ
     Dosage: UNK, (MATERNAL DOSE: 1 DOSAGE FORM, QD (1 TABLET/CAPSULE, DAILY)
     Route: 064
  20. EFAVIRENZ [Suspect]
     Active Substance: EFAVIRENZ
     Dosage: 1 DOSAGE FORM, QD, (MATERNAL DOSE: 1 DOSAGE FORM, QD; 1 TABLET/CAPSULE,DAILY
     Route: 064
  21. EFAVIRENZ [Suspect]
     Active Substance: EFAVIRENZ
     Dosage: UNK UNK, QD
     Route: 064
  22. EFAVIRENZ [Suspect]
     Active Substance: EFAVIRENZ
     Dosage: 1 DOSAGE FORM, QD
     Route: 064
     Dates: start: 20171006, end: 20180205
  23. TRUVADA [Suspect]
     Active Substance: EMTRICITABINE\TENOFOVIR DISOPROXIL FUMARATE
     Indication: Foetal exposure during pregnancy
     Dosage: 1 DOSAGE FORM, QD, (THERAPY START DATE: 06-OCT-2017)
     Route: 064
     Dates: start: 20171006, end: 20180205
  24. TRUVADA [Suspect]
     Active Substance: EMTRICITABINE\TENOFOVIR DISOPROXIL FUMARATE
     Indication: Supplementation therapy
  25. TRUVADA [Suspect]
     Active Substance: EMTRICITABINE\TENOFOVIR DISOPROXIL FUMARATE
     Indication: HIV infection
     Dosage: 1 DOSAGE FORM, QD, (MATERNAL DOSE)
     Route: 064
  26. TRUVADA [Suspect]
     Active Substance: EMTRICITABINE\TENOFOVIR DISOPROXIL FUMARATE
  27. TRUVADA [Suspect]
     Active Substance: EMTRICITABINE\TENOFOVIR DISOPROXIL FUMARATE
     Dosage: 1 DOSAGE FORM, QD, (MATERNAL DOSE)
     Route: 064
     Dates: start: 20171006, end: 20180205
  28. TRUVADA [Suspect]
     Active Substance: EMTRICITABINE\TENOFOVIR DISOPROXIL FUMARATE
     Dosage: 1 DOSAGE FORM, QD (MATERNAL DOSE)
     Route: 064
  29. TRUVADA [Suspect]
     Active Substance: EMTRICITABINE\TENOFOVIR DISOPROXIL FUMARATE
     Dosage: MATERNAL DOSE: 1 DOSAGE FORM, QD
     Route: 064
     Dates: start: 20180205
  30. TRUVADA [Suspect]
     Active Substance: EMTRICITABINE\TENOFOVIR DISOPROXIL FUMARATE
     Dosage: 1 DOSAGE FORM,
     Route: 064
  31. VITAMIN B12 [Suspect]
     Active Substance: CYANOCOBALAMIN
     Indication: Product used for unknown indication
     Dosage: UNK
     Route: 064
  32. COBAMAMIDE [Suspect]
     Active Substance: COBAMAMIDE
     Indication: Product used for unknown indication
  33. CYANOCOBALAMIN [Suspect]
     Active Substance: CYANOCOBALAMIN
     Indication: Product used for unknown indication
     Dosage: UNK
     Route: 064
     Dates: start: 20100610
  34. LOPINAVIR [Suspect]
     Active Substance: LOPINAVIR
     Indication: Antiviral treatment
  35. METFORMIN HYDROCHLORIDE [Suspect]
     Active Substance: METFORMIN HYDROCHLORIDE
     Indication: Product used for unknown indication
     Dosage: UNK
     Route: 064
  36. RITONAVIR [Suspect]
     Active Substance: RITONAVIR
     Indication: Antiviral treatment
     Dosage: UNK, MATERNAL DOSE: UNK
     Route: 064
     Dates: start: 20100610
  37. TENOFOVIR DISOPROXIL [Suspect]
     Active Substance: TENOFOVIR DISOPROXIL
     Indication: Product used for unknown indication
     Dosage: UNK, (MATERNAL DOSE: 300 MG, QD)
     Route: 064
     Dates: start: 20100610
  38. EFAVIRENZ [Suspect]
     Active Substance: EFAVIRENZ
     Indication: Foetal exposure during pregnancy
     Dosage: MATERNAL DOSE: 1 DOSAGE FORM, QD
     Route: 064
     Dates: start: 20180205
  39. EFAVIRENZ [Suspect]
     Active Substance: EFAVIRENZ
     Indication: HIV infection
     Dosage: 1 DOSAGE FORM,
     Route: 064
     Dates: start: 20171006, end: 20180205
  40. EFAVIRENZ [Suspect]
     Active Substance: EFAVIRENZ
     Dosage: UNK
     Route: 064
  41. EMTRICITABINE\TENOFOVIR DISOPROXIL FUMARATE [Suspect]
     Active Substance: EMTRICITABINE\TENOFOVIR DISOPROXIL FUMARATE
     Indication: HIV infection
     Dosage: MATERNAL DOSE: 1 TABLET/CAPSULE, QD
     Route: 064
     Dates: start: 20171006, end: 20180205
  42. EMTRICITABINE\TENOFOVIR DISOPROXIL FUMARATE [Suspect]
     Active Substance: EMTRICITABINE\TENOFOVIR DISOPROXIL FUMARATE
     Indication: Foetal exposure during pregnancy
  43. LABETALOL [Suspect]
     Active Substance: LABETALOL\LABETALOL HYDROCHLORIDE
     Indication: Foetal exposure during pregnancy
     Dosage: UNK (MATERNAL DOSE: UNKNOWN)
     Route: 064
  44. LABETALOL [Suspect]
     Active Substance: LABETALOL\LABETALOL HYDROCHLORIDE
     Route: 064
  45. METFORMIN [Suspect]
     Active Substance: METFORMIN HYDROCHLORIDE
     Indication: Foetal exposure during pregnancy
     Route: 064
  46. FOLATE SODIUM [Suspect]
     Active Substance: FOLATE SODIUM
     Indication: Foetal exposure during pregnancy
     Dosage: UNK (MATERNAL DOSE: UNKNOWN)
     Route: 064
  47. FOLATE SODIUM [Suspect]
     Active Substance: FOLATE SODIUM
     Indication: Supplementation therapy
     Route: 064
  48. LAMIVUDINE [Suspect]
     Active Substance: LAMIVUDINE
     Indication: Foetal exposure during pregnancy
     Dosage: MATERNAL DOSE: 300 MG ORAL
     Route: 064
     Dates: start: 20090101, end: 20100610
  49. TENOFOVIR [Suspect]
     Active Substance: TENOFOVIR
     Indication: Foetal exposure during pregnancy
     Dosage: MATERNAL DOSE
     Route: 064
     Dates: start: 20100610
  50. ISENTRESS [Suspect]
     Active Substance: RALTEGRAVIR POTASSIUM
     Indication: Foetal exposure during pregnancy
     Dosage: MATERNAL DOSE: 3200 MG.
     Dates: start: 20100610
  51. VITAMIN B12 [Suspect]
     Active Substance: CYANOCOBALAMIN
     Indication: Product used for unknown indication
     Dosage: MATERNAL DOSE: UNK
     Route: 064
     Dates: start: 20100610
  52. VITAMIN B12 [Suspect]
     Active Substance: CYANOCOBALAMIN
     Dosage: UNK
     Route: 064
  53. FOLATE SODIUM [Suspect]
     Active Substance: FOLATE SODIUM
     Indication: Supplementation therapy
     Dosage: UNK
     Route: 064
  54. EMTRICITABINE [Suspect]
     Active Substance: EMTRICITABINE
     Indication: HIV infection
     Dosage: 1 DF
     Route: 064
     Dates: start: 20171006, end: 20180205
  55. ZIDOVUDINE [Suspect]
     Active Substance: ZIDOVUDINE
     Indication: Foetal exposure during pregnancy
     Route: 064
     Dates: start: 20090110, end: 20100610
  56. ZIDOVUDINE [Suspect]
     Active Substance: ZIDOVUDINE
     Route: 064
     Dates: start: 20090110
  57. ZIDOVUDINE [Suspect]
     Active Substance: ZIDOVUDINE
     Route: 064
     Dates: start: 20100610
  58. INSULIN ASPART [Suspect]
     Active Substance: INSULIN ASPART
     Indication: Product used for unknown indication
     Dosage: UNK
     Route: 064
  59. TENOFOVIR DISOPROXIL FUMARATE [Suspect]
     Active Substance: TENOFOVIR DISOPROXIL FUMARATE
     Indication: Product used for unknown indication
     Dosage: 1 DOSAGE FORM, (1 TABLET/CAPSULE)
     Route: 064
     Dates: start: 20171006
  60. FOLIC ACID [Suspect]
     Active Substance: FOLIC ACID
     Indication: Product used for unknown indication

REACTIONS (12)
  - Hepatic cytolysis [Fatal]
  - Foetal exposure during pregnancy [Fatal]
  - Ultrasound antenatal screen [Fatal]
  - Hydrops foetalis [Fatal]
  - Trisomy 18 [Fatal]
  - Cleft lip and palate [Fatal]
  - Off label use [Fatal]
  - Aspartate aminotransferase increased [Fatal]
  - Alanine aminotransferase increased [Fatal]
  - Intentional product use issue [Fatal]
  - Foetal exposure during pregnancy [Fatal]
  - Ultrasound antenatal screen [Unknown]

NARRATIVE: CASE EVENT DATE: 20120521
